FAERS Safety Report 18054788 (Version 4)
Quarter: 2020Q3

REPORT INFORMATION
  Report Type: Spontaneous
  Country: HR (occurrence: HR)
  Receive Date: 20200722
  Receipt Date: 20200909
  Transmission Date: 20201103
  Serious: Yes (Other)
  Sender: FDA-Public Use
  Company Number: HR-PFIZER INC-2020278815

PATIENT
  Age: 77 Year
  Sex: Male
  Weight: 113 kg

DRUGS (15)
  1. ATORVASTATIN CALCIUM. [Interacting]
     Active Substance: ATORVASTATIN CALCIUM
     Indication: ATRIAL FIBRILLATION
  2. DABIGATRAN [Interacting]
     Active Substance: DABIGATRAN
     Indication: ATRIAL FIBRILLATION
     Dosage: 110 MG, 2X/DAY
  3. CARVEDILOL. [Interacting]
     Active Substance: CARVEDILOL
     Indication: ATRIAL FIBRILLATION
  4. VALSARTAN. [Interacting]
     Active Substance: VALSARTAN
     Indication: HYPERTENSION
     Dosage: 80 MG, 1X/DAY
     Route: 048
  5. VALSARTAN. [Interacting]
     Active Substance: VALSARTAN
     Indication: ATRIAL FIBRILLATION
  6. LEVOTHYROXINE. [Concomitant]
     Active Substance: LEVOTHYROXINE
     Dosage: 75 UG (ON SATURDAY AND SUNDAY)
  7. PAZOPANIB [Interacting]
     Active Substance: PAZOPANIB
     Indication: METASTATIC RENAL CELL CARCINOMA
     Dosage: 800 MG, 1X/DAY (AT LEAST ONE HOUR BEFORE HIS MEAL)
     Route: 048
  8. ATORVASTATIN CALCIUM. [Suspect]
     Active Substance: ATORVASTATIN CALCIUM
     Indication: HYPERTENSION
     Dosage: 20 MG,1X/DAY
     Route: 048
  9. CODEINE PHOSPHATE [Interacting]
     Active Substance: CODEINE PHOSPHATE
     Dosage: 30 MG, 3X/DAY
  10. LEVOTHYROXINE. [Concomitant]
     Active Substance: LEVOTHYROXINE
     Indication: HYPOTHYROIDISM
     Dosage: 50 UG (WEEKDAYS)
  11. CARVEDILOL. [Interacting]
     Active Substance: CARVEDILOL
     Indication: HYPERTENSION
     Dosage: 6.25 MG, 1X/DAY
     Route: 048
  12. VILDAGLIPTIN [Interacting]
     Active Substance: VILDAGLIPTIN
     Indication: TYPE 2 DIABETES MELLITUS
     Dosage: 50 MG, 2X/DAY
  13. LACIDIPINE [Interacting]
     Active Substance: LACIDIPINE
     Indication: ATRIAL FIBRILLATION
  14. METFORMIN [Concomitant]
     Active Substance: METFORMIN HYDROCHLORIDE
     Indication: TYPE 2 DIABETES MELLITUS
     Dosage: 1000 MG, 2X/DAY
  15. LACIDIPINE [Interacting]
     Active Substance: LACIDIPINE
     Indication: HYPERTENSION
     Dosage: 4 MG, 1X/DAY
     Route: 048

REACTIONS (2)
  - Hyperglycaemia [Recovered/Resolved]
  - Drug interaction [Unknown]
